FAERS Safety Report 6369908-4 (Version None)
Quarter: 2009Q3

REPORT INFORMATION
  Report Type: 
  Country: None (occurrence: None)
  Receive Date: 20090923
  Receipt Date: 20070515
  Transmission Date: 20100115
  Serious: Yes (Other)
  Sender: FDA-Public Use
  Company Number: US-ASTRAZENECA-2006UW11270

PATIENT
  Age: 17508 Day
  Sex: Female
  Weight: 106.6 kg

DRUGS (13)
  1. SEROQUEL [Suspect]
     Indication: SCHIZOPHRENIA
     Route: 048
     Dates: end: 20040401
  2. SEROQUEL [Suspect]
     Dosage: 200 MG TO 300 MG
     Route: 048
     Dates: start: 20031001
  3. ZYPREXA [Suspect]
     Dates: start: 20040224
  4. GEODON [Concomitant]
  5. HALDOL [Concomitant]
  6. RISPERDAL [Concomitant]
  7. TOPAMAX [Concomitant]
     Dates: start: 20031001
  8. RANITIDINE [Concomitant]
     Indication: GASTROOESOPHAGEAL REFLUX DISEASE
     Dates: start: 20031030
  9. METOCLOPRAMIDE [Concomitant]
     Dates: start: 20031030
  10. IBUPROFEN [Concomitant]
     Dates: start: 20031118
  11. DIPHENHYDRAMINE HCL [Concomitant]
     Dates: start: 20031118
  12. NABUMETONE [Concomitant]
     Dates: start: 20040213
  13. TYLENOL (CAPLET) [Concomitant]
     Indication: PAIN
     Dosage: 325 MG TO 500 MG
     Dates: start: 20011024

REACTIONS (3)
  - DIABETES MELLITUS [None]
  - DIABETES MELLITUS INADEQUATE CONTROL [None]
  - PANCREATITIS [None]
